FAERS Safety Report 7420903-3 (Version None)
Quarter: 2011Q2

REPORT INFORMATION
  Report Type: 
  Country: None (occurrence: None)
  Receive Date: 20110418
  Receipt Date: 20110408
  Transmission Date: 20111010
  Serious: Yes (Hospitalization, Disabling)
  Sender: FDA-Public Use
  Company Number: B0510097A

PATIENT
  Sex: Female
  Weight: 87 kg

DRUGS (7)
  1. PERFALGAN [Concomitant]
     Dosage: 4G PER DAY
     Route: 042
     Dates: start: 20080216
  2. SOLU-MEDROL [Concomitant]
     Dosage: 200MG PER DAY
     Route: 042
     Dates: start: 20080215
  3. SPASFON [Concomitant]
     Dosage: 6INJ PER DAY
     Route: 042
     Dates: start: 20080215, end: 20080218
  4. TAHOR [Concomitant]
     Dosage: 20MG PER DAY
     Route: 048
  5. ARIXTRA [Suspect]
     Indication: ATRIAL FIBRILLATION
     Dosage: 7.5MG PER DAY
     Route: 058
     Dates: start: 20080217
  6. SOTALOL HCL [Concomitant]
     Dosage: 80MG PER DAY
     Route: 048
  7. PREVISCAN [Suspect]
     Indication: ATRIAL FIBRILLATION
     Dosage: .75UNIT PER DAY
     Route: 048

REACTIONS (7)
  - OFF LABEL USE [None]
  - PARAPLEGIA [None]
  - BACK PAIN [None]
  - ABDOMINAL PAIN [None]
  - SPINAL HAEMATOMA [None]
  - SUBDURAL HAEMATOMA [None]
  - EXTRADURAL HAEMATOMA [None]
